FAERS Safety Report 8934890 (Version 1)
Quarter: 2012Q4

REPORT INFORMATION
  Report Type: 
  Country: US (occurrence: US)
  Receive Date: 20121129
  Receipt Date: 20121129
  Transmission Date: 20130627
  Serious: No
  Sender: FDA-Public Use
  Company Number: US-B.I. PHARMACEUTICALS,INC./RIDGEFIELD-2012-BI-00482BP

PATIENT
  Age: 56 Year
  Sex: Male

DRUGS (2)
  1. TRADJENTA [Suspect]
     Indication: BLOOD GLUCOSE ABNORMAL
     Dosage: 5 mg
     Dates: start: 201211, end: 201211
  2. TRADJENTA [Suspect]
     Indication: TYPE 2 DIABETES MELLITUS

REACTIONS (1)
  - Pruritus [Not Recovered/Not Resolved]
